FAERS Safety Report 6792814-8 (Version None)
Quarter: 2010Q2

REPORT INFORMATION
  Report Type: 
  Country: None (occurrence: None)
  Receive Date: 20100624
  Receipt Date: 20081011
  Transmission Date: 20101027
  Serious: No
  Sender: FDA-Public Use
  Company Number: US-PFIZER INC-2008085743

PATIENT
  Sex: Male
  Weight: 95.454 kg

DRUGS (2)
  1. XALATAN [Suspect]
     Indication: GLAUCOMA
     Dates: start: 20080901
  2. ALPHAGAN [Concomitant]

REACTIONS (1)
  - DEPRESSION [None]
